FAERS Safety Report 9400057 (Version 2)
Quarter: 2013Q3

REPORT INFORMATION
  Report Type: Spontaneous
  Country: ES (occurrence: ES)
  Receive Date: 20130715
  Receipt Date: 20130724
  Transmission Date: 20140515
  Serious: Yes (Other)
  Sender: FDA-Public Use
  Company Number: ES-AMGEN-ESPSP2013048736

PATIENT
  Age: 53 Year
  Sex: Male
  Weight: 80 kg

DRUGS (4)
  1. NPLATE [Suspect]
     Indication: IMMUNE THROMBOCYTOPENIC PURPURA
     Dosage: 1MUG/KG, QWK
     Route: 058
     Dates: start: 20130610
  2. ICANDRA [Concomitant]
     Indication: DIABETES MELLITUS
     Route: 048
  3. LANSOPRAZOLE [Concomitant]
     Indication: GASTRIC DISORDER
     Route: 048
  4. SECALIP [Concomitant]
     Indication: DYSLIPIDAEMIA
     Route: 048

REACTIONS (4)
  - Therapeutic response decreased [Recovering/Resolving]
  - Platelet count decreased [Recovering/Resolving]
  - Arthralgia [Not Recovered/Not Resolved]
  - Myalgia [Not Recovered/Not Resolved]
